FAERS Safety Report 21465588 (Version 1)
Quarter: 2022Q4

REPORT INFORMATION
  Report Type: Spontaneous
  Country: US (occurrence: None)
  Receive Date: 20221014
  Receipt Date: 20221014
  Transmission Date: 20230113
  Serious: No
  Sender: FDA-Public Use
  Company Number: None

PATIENT

DRUGS (2)
  1. BACLOFEN [Suspect]
     Active Substance: BACLOFEN
     Route: 048
  2. POLYETHYLENE GLYCOL 3350 [Suspect]
     Active Substance: POLYETHYLENE GLYCOL 3350

REACTIONS (7)
  - Nausea [None]
  - Dysphagia [None]
  - Vomiting [None]
  - Seizure [None]
  - Product dispensing error [None]
  - Incorrect dose administered [None]
  - Product barcode issue [None]
